FAERS Safety Report 21667999 (Version 1)
Quarter: 2022Q4

REPORT INFORMATION
  Report Type: Spontaneous
  Country: GB (occurrence: GB)
  Receive Date: 20221201
  Receipt Date: 20221201
  Transmission Date: 20230113
  Serious: Yes (Life-Threatening, Hospitalization, Disabling, Other)
  Sender: FDA-Public Use
  Company Number: None

PATIENT
  Age: 37 Year
  Sex: Female
  Weight: 77 kg

DRUGS (1)
  1. OZEMPIC [Suspect]
     Active Substance: SEMAGLUTIDE
     Indication: Weight control
     Dosage: UNK
     Dates: start: 20220802, end: 20220928

REACTIONS (10)
  - Cholecystectomy [Recovering/Resolving]
  - Liver injury [Recovering/Resolving]
  - Hepatic pain [Not Recovered/Not Resolved]
  - Jaundice [Unknown]
  - Hepatomegaly [Unknown]
  - Biliary obstruction [Unknown]
  - Liver function test abnormal [Unknown]
  - Cholelithiasis [Unknown]
  - Biliary colic [Unknown]
  - Off label use [Unknown]

NARRATIVE: CASE EVENT DATE: 20220928
